FAERS Safety Report 17388607 (Version 5)
Quarter: 2020Q4

REPORT INFORMATION
  Report Type: Spontaneous
  Country: US (occurrence: US)
  Receive Date: 20200207
  Receipt Date: 20201120
  Transmission Date: 20210113
  Serious: No
  Sender: FDA-Public Use
  Company Number: US-PFIZER INC-2020050713

PATIENT
  Age: 53 Year
  Sex: Female

DRUGS (1)
  1. XELJANZ XR [Suspect]
     Active Substance: TOFACITINIB CITRATE
     Dosage: 11 MG, UNK
     Dates: start: 20190203

REACTIONS (7)
  - Tremor [Not Recovered/Not Resolved]
  - Dyspnoea exertional [Unknown]
  - Illness [Unknown]
  - Pain in extremity [Unknown]
  - Inflammation [Not Recovered/Not Resolved]
  - Memory impairment [Unknown]
  - Weight increased [Unknown]

NARRATIVE: CASE EVENT DATE: 2019
